FAERS Safety Report 26162419 (Version 1)
Quarter: 2025Q4

REPORT INFORMATION
  Report Type: Spontaneous
  Country: US (occurrence: US)
  Receive Date: 20251216
  Receipt Date: 20251216
  Transmission Date: 20260117
  Serious: Yes (Other)
  Sender: CATALYST PHARMA
  Company Number: US-CATALYST PHARMACEUTICALS, INC-US-CATA-25-01906

PATIENT
  Age: 56 Year
  Sex: Male

DRUGS (3)
  1. AMIFAMPRIDINE [Suspect]
     Active Substance: AMIFAMPRIDINE
     Indication: Myasthenic syndrome
     Dosage: 10 MG THREE TIMES PER DAY
     Route: 065
  2. AMIFAMPRIDINE [Suspect]
     Active Substance: AMIFAMPRIDINE
     Dosage: MAINTENANCE DOSE: 65 MG A DAY
     Route: 065
  3. PYRIDOSTIGMINE [Concomitant]
     Active Substance: PYRIDOSTIGMINE
     Indication: Myasthenic syndrome
     Dosage: 480 MG A DAY IN 4 DOSES
     Route: 065

REACTIONS (1)
  - Cerebellar ataxia [Recovering/Resolving]
